FAERS Safety Report 9870690 (Version 2)
Quarter: 2014Q1

REPORT INFORMATION
  Report Type: Spontaneous
  Country: SE (occurrence: SE)
  Receive Date: 20140205
  Receipt Date: 20140303
  Transmission Date: 20141002
  Serious: Yes (Hospitalization)
  Sender: FDA-Public Use
  Company Number: PHHY2014SE011518

PATIENT
  Age: 67 Year
  Sex: Female

DRUGS (8)
  1. TASIGNA [Suspect]
     Indication: CHRONIC MYELOID LEUKAEMIA
     Route: 048
     Dates: start: 20121031
  2. XARELTO [Interacting]
     Indication: ATRIAL FIBRILLATION
     Dosage: 20 MG, QD
     Route: 048
     Dates: start: 20130827, end: 20130917
  3. METOPROLOL [Concomitant]
  4. CETIRIZINE [Concomitant]
     Dosage: 1 DF, UNK
     Dates: start: 20121031
  5. BETNOVAT [Concomitant]
     Dates: start: 20121031
  6. ZOLPIDEM [Concomitant]
     Dosage: 1 DF, UNK
     Dates: start: 20121031
  7. CLINDAMYCIN [Concomitant]
  8. VISCOTEARS [Concomitant]
     Dosage: UNK
     Dates: start: 20111017

REACTIONS (4)
  - Haemorrhage subcutaneous [Recovered/Resolved]
  - Drug interaction [Recovered/Resolved]
  - Neck pain [Unknown]
  - Skin discolouration [Unknown]
